FAERS Safety Report 15412972 (Version 3)
Quarter: 2020Q3

REPORT INFORMATION
  Report Type: Spontaneous
  Country: US (occurrence: US)
  Receive Date: 20180921
  Receipt Date: 20181220
  Transmission Date: 20201104
  Serious: Yes (Other)
  Sender: FDA-Public Use
  Company Number: US-009507513-1809USA006916

PATIENT
  Age: 41 Year
  Sex: Female
  Weight: 64.5 kg

DRUGS (5)
  1. INVANZ [Suspect]
     Active Substance: ERTAPENEM SODIUM
     Indication: URINARY TRACT INFECTION
     Dosage: 1 G, ONCE A DAY
     Route: 042
     Dates: start: 20180821, end: 20180823
  2. CEPHALEXIN. [Suspect]
     Active Substance: CEPHALEXIN
     Indication: URINARY TRACT INFECTION
     Dosage: 500 MG, TWICE  A DAY
     Route: 048
     Dates: start: 20180821, end: 20180821
  3. NITROFURANTOIN. [Concomitant]
     Active Substance: NITROFURANTOIN
     Indication: URINARY TRACT INFECTION
     Dosage: UNK
     Dates: start: 20180816, end: 20180820
  4. RIVIPANSEL. [Suspect]
     Active Substance: RIVIPANSEL
     Indication: SICKLE CELL ANAEMIA WITH CRISIS
     Dosage: UNKNOWN (THE MOST RECENT DOSE 840MG), TWIECE A DAY (EVERY 12 HOUR)
     Route: 042
     Dates: start: 20180821, end: 20180823
  5. FOSFOMYCIN TROMETHAMINE [Suspect]
     Active Substance: FOSFOMYCIN TROMETHAMINE
     Indication: URINARY TRACT INFECTION
     Dosage: 3 G, ONCE A DAY
     Route: 048
     Dates: start: 20180824, end: 20180827

REACTIONS (6)
  - Blood lactate dehydrogenase increased [Unknown]
  - Sickle cell anaemia with crisis [Unknown]
  - Rash pruritic [Recovered/Resolved]
  - Rash erythematous [Recovered/Resolved]
  - Blood creatinine decreased [Unknown]
  - Herpes simplex reactivation [Unknown]

NARRATIVE: CASE EVENT DATE: 20180823
